FAERS Safety Report 7414550-7 (Version None)
Quarter: 2011Q2

REPORT INFORMATION
  Report Type: 
  Country: None (occurrence: None)
  Receive Date: 20110411
  Receipt Date: 20110411
  Transmission Date: 20111010
  Serious: Yes (Other)
  Sender: FDA-Public Use
  Company Number: None

PATIENT
  Sex: Female

DRUGS (16)
  1. OXYCONTIN [Concomitant]
  2. PLAQUENIL [Concomitant]
  3. TRAVATAN Z [Suspect]
     Indication: GLAUCOMA
     Dosage: 1 DROP EACH EYE EACH NIGHT OPHTHALMIC
     Route: 047
     Dates: start: 20110103, end: 20110228
  4. FUROSEMIDE [Concomitant]
  5. ADDERALL XR 10 [Concomitant]
  6. DOCUSATE SODIUM  WITH SENNOSIDES [Concomitant]
  7. AVAPRO [Concomitant]
  8. ASPIRIN [Concomitant]
  9. DICLOFENAC [Concomitant]
  10. GLUCAGON [Concomitant]
  11. LEVEMIR [Concomitant]
  12. BUPROPN [Concomitant]
  13. OXYCODONE HCL [Concomitant]
  14. LEXAPRO [Concomitant]
  15. NOVOLOG [Concomitant]
  16. TOPAMAX [Concomitant]

REACTIONS (4)
  - BLOOD GLUCOSE DECREASED [None]
  - EYE PRURITUS [None]
  - EPISTAXIS [None]
  - ADVERSE DRUG REACTION [None]
